FAERS Safety Report 4467672-7 (Version None)
Quarter: 2004Q4

REPORT INFORMATION
  Report Type: 
  Country: None (occurrence: None)
  Receive Date: 20041001
  Receipt Date: 20040927
  Transmission Date: 20050328
  Serious: Yes (Disabling)
  Sender: FDA-Public Use
  Company Number: TPA2004A00988

PATIENT
  Age: 64 Year
  Sex: Male
  Weight: 100.2449 kg

DRUGS (6)
  1. ACTOS [Suspect]
     Dosage: 15 MG, 1 IN 1 D, PER ORAL
     Route: 048
     Dates: start: 20040701
  2. HUMALOG 75/25 (INSULIN LISPRO) [Concomitant]
  3. HUMALOG [Concomitant]
  4. METFORMIN ER (METFORMIN HYDROCHLORIDE) [Concomitant]
  5. PLAVIX [Concomitant]
  6. TOPROL-XL [Concomitant]

REACTIONS (6)
  - ANGINA PECTORIS [None]
  - ARTERIAL STENOSIS LIMB [None]
  - BLOOD GLUCOSE INCREASED [None]
  - CARDIAC FAILURE CONGESTIVE [None]
  - HIATUS HERNIA [None]
  - PNEUMONIA [None]
